FAERS Safety Report 10078251 (Version 2)
Quarter: 2014Q2

REPORT INFORMATION
  Report Type: Spontaneous
  Country: AR (occurrence: AR)
  Receive Date: 20140415
  Receipt Date: 20140429
  Transmission Date: 20141212
  Serious: Yes (Other)
  Sender: FDA-Public Use
  Company Number: AR-AMGEN INC.-ARGSP2014027276

PATIENT
  Age: 60 Year
  Sex: Male

DRUGS (1)
  1. ENBREL [Suspect]
     Indication: RHEUMATOID ARTHRITIS
     Dosage: 50 MG, WEEKLY
     Route: 058
     Dates: start: 20090214

REACTIONS (4)
  - Urethral stenosis [Recovering/Resolving]
  - Urethral neoplasm [Recovering/Resolving]
  - Urethral disorder [Unknown]
  - Peripheral swelling [Not Recovered/Not Resolved]
